FAERS Safety Report 10155377 (Version 2)
Quarter: 2014Q2

REPORT INFORMATION
  Report Type: Spontaneous
  Country: US (occurrence: US)
  Receive Date: 20140506
  Receipt Date: 20140506
  Transmission Date: 20141212
  Serious: Yes (Death)
  Sender: FDA-Public Use
  Company Number: US-INCYTE CORPORATION-2014IN000115

PATIENT
  Age: 75 Year
  Sex: Male

DRUGS (4)
  1. JAKAFI [Suspect]
     Indication: MYELOFIBROSIS
     Dosage: 20 MG, BID
     Route: 048
     Dates: start: 20131001
  2. DIGOXIN [Concomitant]
  3. METOPROLOL [Concomitant]
  4. LEVOTHYROXINE [Concomitant]

REACTIONS (2)
  - Death [Fatal]
  - Transfusion [Unknown]
